FAERS Safety Report 8087961-7 (Version None)
Quarter: 2012Q1

REPORT INFORMATION
  Report Type: 
  Country: None (occurrence: None)
  Receive Date: 20120130
  Receipt Date: 20120120
  Transmission Date: 20120608
  Serious: Yes (Other)
  Sender: FDA-Public Use
  Company Number: BE-ASTRAZENECA-2012SE03541

PATIENT
  Age: 66 Year
  Sex: Male
  Weight: 86 kg

DRUGS (2)
  1. CASODEX [Suspect]
     Route: 048
     Dates: start: 20050101
  2. TAMOXIFEN CITRATE [Interacting]
     Indication: BREAST DISORDER
     Route: 048
     Dates: start: 20050101

REACTIONS (3)
  - OSTEOPOROSIS [None]
  - OSTEOARTHRITIS [None]
  - DRUG INTERACTION [None]
